FAERS Safety Report 5679935-8 (Version None)
Quarter: 2008Q1

REPORT INFORMATION
  Report Type: 
  Country: None (occurrence: None)
  Receive Date: 20080324
  Receipt Date: 20080307
  Transmission Date: 20080703
  Serious: No
  Sender: FDA-Public Use
  Company Number: 8028207

PATIENT
  Age: 9 Year
  Sex: Male
  Weight: 40.4 kg

DRUGS (5)
  1. METHYLPHENIDATE HCL [Suspect]
     Dosage: 20 MG /D
     Dates: start: 20070301, end: 20070321
  2. METHYLPHENIDATE HCL [Suspect]
     Dosage: 30 MG /D
     Dates: start: 20070322
  3. METHYLPHENIDATE HCL [Suspect]
     Dates: start: 20070420
  4. RISPERIDONE [Concomitant]
  5. RITALIN [Concomitant]

REACTIONS (9)
  - APATHY [None]
  - CRYING [None]
  - FATIGUE [None]
  - GASTROINTESTINAL PAIN [None]
  - HEADACHE [None]
  - HYPOTONIA [None]
  - MOVEMENT DISORDER [None]
  - ONYCHOPHAGIA [None]
  - SOCIAL AVOIDANT BEHAVIOUR [None]
